FAERS Safety Report 4383460-4 (Version None)
Quarter: 2004Q2

REPORT INFORMATION
  Report Type: 
  Country: None (occurrence: None)
  Receive Date: 20040622
  Receipt Date: 20040622
  Transmission Date: 20050107
  Serious: Yes (Hospitalization)
  Sender: FDA-Public Use
  Company Number: None

PATIENT
  Sex: Male

DRUGS (2)
  1. WARFARIN SODIUM [Suspect]
     Indication: DEEP VEIN THROMBOSIS
     Dosage: 5 MG MTH, 25 MG OTHER DAYS
  2. WARFARIN SODIUM [Suspect]
     Indication: PULMONARY EMBOLISM
     Dosage: 5 MG MTH, 25 MG OTHER DAYS

REACTIONS (3)
  - ANAEMIA [None]
  - INTERNATIONAL NORMALISED RATIO INCREASED [None]
  - REFUSAL OF TREATMENT BY PATIENT [None]
